FAERS Safety Report 6228608-1 (Version None)
Quarter: 2009Q2

REPORT INFORMATION
  Report Type: 
  Country: None (occurrence: None)
  Receive Date: 20090612
  Receipt Date: 20090605
  Transmission Date: 20091009
  Serious: Yes (Other)
  Sender: FDA-Public Use
  Company Number: ES-GILEAD-2009-0022457

PATIENT
  Age: 44 Year
  Sex: Male

DRUGS (3)
  1. VIREAD [Suspect]
     Indication: DRUG USE FOR UNKNOWN INDICATION
  2. EMTRIVA [Suspect]
     Indication: DRUG USE FOR UNKNOWN INDICATION
  3. EFAVIRENZ [Concomitant]

REACTIONS (1)
  - OSTEONECROSIS [None]
